FAERS Safety Report 15225519 (Version 2)
Quarter: 2020Q4

REPORT INFORMATION
  Report Type: Spontaneous
  Country: SK (occurrence: SK)
  Receive Date: 20180801
  Receipt Date: 20201113
  Transmission Date: 20210113
  Serious: Yes (Hospitalization, Other)
  Sender: FDA-Public Use
  Company Number: SK-B.I. PHARMACEUTICALS,INC./RIDGEFIELD-2018-BI-038941

PATIENT
  Age: 70 Year
  Sex: Male

DRUGS (13)
  1. DOXAZOSIN [Concomitant]
     Active Substance: DOXAZOSIN MESYLATE
     Indication: PRODUCT USED FOR UNKNOWN INDICATION
     Route: 065
  2. METFORMIN [Suspect]
     Active Substance: METFORMIN HYDROCHLORIDE
     Route: 065
  3. AMIODARONE [Concomitant]
     Active Substance: AMIODARONE
     Indication: PRODUCT USED FOR UNKNOWN INDICATION
     Route: 065
  4. BISOPROLOL [Concomitant]
     Active Substance: BISOPROLOL
     Indication: PRODUCT USED FOR UNKNOWN INDICATION
     Route: 065
  5. NIFEDIPINE. [Concomitant]
     Active Substance: NIFEDIPINE
     Indication: PRODUCT USED FOR UNKNOWN INDICATION
     Route: 065
  6. NITRENDIPINE [Suspect]
     Active Substance: NITRENDIPINE
     Indication: PROPHYLAXIS
     Route: 065
  7. PRITOR (TELMISARTAN) [Suspect]
     Active Substance: TELMISARTAN
     Indication: PRODUCT USED FOR UNKNOWN INDICATION
     Route: 048
  8. SPIRONOLACTONE. [Suspect]
     Active Substance: SPIRONOLACTONE
     Indication: ATRIAL FIBRILLATION
     Route: 048
  9. URAPIDIL [Concomitant]
     Active Substance: URAPIDIL
     Indication: PRODUCT USED FOR UNKNOWN INDICATION
     Route: 065
  10. PRADAXA [Suspect]
     Active Substance: DABIGATRAN ETEXILATE MESYLATE
     Indication: PROPHYLAXIS
     Route: 065
  11. PRADAXA [Suspect]
     Active Substance: DABIGATRAN ETEXILATE MESYLATE
     Route: 065
  12. ATORVASTATIN [Concomitant]
     Active Substance: ATORVASTATIN
     Indication: PRODUCT USED FOR UNKNOWN INDICATION
     Route: 065
  13. METFORMIN [Suspect]
     Active Substance: METFORMIN HYDROCHLORIDE
     Indication: DIABETES MELLITUS
     Route: 065

REACTIONS (13)
  - Urinary tract infection [Recovered/Resolved]
  - Benign prostatic hyperplasia [Recovering/Resolving]
  - Atrial fibrillation [Recovered/Resolved]
  - Urinary retention [Recovering/Resolving]
  - Haematuria [Recovered/Resolved]
  - Coagulopathy [Recovering/Resolving]
  - Calculus bladder [Unknown]
  - Acute kidney injury [Recovered/Resolved]
  - Bladder dilatation [Unknown]
  - Hydronephrosis [Unknown]
  - Pollakiuria [Recovered/Resolved]
  - Asthenia [Recovered/Resolved]
  - Nephrolithiasis [Unknown]

NARRATIVE: CASE EVENT DATE: 2017
